FAERS Safety Report 7545553-X (Version None)
Quarter: 2011Q2

REPORT INFORMATION
  Report Type: 
  Country: None (occurrence: None)
  Receive Date: 20110613
  Receipt Date: 20110613
  Transmission Date: 20111010
  Serious: No
  Sender: FDA-Public Use
  Company Number: None

PATIENT
  Age: 70 Year
  Sex: Male
  Weight: 81.9 kg

DRUGS (1)
  1. CHOLECALCIFEROL [Suspect]
     Indication: VITAMIN D DEFICIENCY
     Dosage: 800 UNITS EVERY DAY PO
     Route: 048
     Dates: start: 20110510, end: 20110516

REACTIONS (1)
  - ANGIOEDEMA [None]
